FAERS Safety Report 9689261 (Version 2)
Quarter: 2014Q2

REPORT INFORMATION
  Report Type: Report from Study
  Country: AZ (occurrence: AZ)
  Receive Date: 20131114
  Receipt Date: 20140617
  Transmission Date: 20141212
  Serious: Yes (Death, Hospitalization, Other)
  Sender: FDA-Public Use
  Company Number: PHHY2013AZ129327

PATIENT
  Age: 66 Year
  Sex: Male

DRUGS (2)
  1. GLIVEC [Suspect]
     Indication: GASTROINTESTINAL STROMAL TUMOUR
     Dosage: 800 MG, ONCE/SINGLE
     Route: 048
  2. GLIVEC [Suspect]
     Indication: CHRONIC MYELOID LEUKAEMIA

REACTIONS (3)
  - Cardiovascular insufficiency [Fatal]
  - General physical health deterioration [Unknown]
  - Blast crisis in myelogenous leukaemia [Unknown]
